FAERS Safety Report 14212118 (Version 1)
Quarter: 2017Q4

REPORT INFORMATION
  Report Type: Spontaneous
  Country: JP (occurrence: JP)
  Receive Date: 20171121
  Receipt Date: 20171121
  Transmission Date: 20180321
  Serious: Yes (Other)
  Sender: FDA-Public Use
  Company Number: JP-ALLERGAN-1765855US

PATIENT
  Age: 76 Year
  Sex: Female

DRUGS (6)
  1. PREDNISOLONE. [Suspect]
     Active Substance: PREDNISOLONE
     Dosage: 17.5 MG, QD
     Route: 065
  2. PREDNISOLONE. [Suspect]
     Active Substance: PREDNISOLONE
     Indication: COLITIS ULCERATIVE
     Dosage: 60 MG, QD
     Route: 065
  3. ISONIAZID. [Concomitant]
     Active Substance: ISONIAZID
     Indication: EXTRAPULMONARY TUBERCULOSIS
     Route: 065
  4. RIFAMPICIN [Concomitant]
     Active Substance: RIFAMPIN
     Indication: EXTRAPULMONARY TUBERCULOSIS
     Route: 065
  5. MESALAZINE UNK [Suspect]
     Active Substance: MESALAMINE
     Indication: COLITIS ULCERATIVE
     Dosage: 2250 MG, QD
     Route: 065
  6. STREPTOMYCIN [Concomitant]
     Active Substance: STREPTOMYCIN\STREPTOMYCIN SULFATE
     Indication: EXTRAPULMONARY TUBERCULOSIS
     Route: 065

REACTIONS (4)
  - Cytomegalovirus enteritis [Recovered/Resolved]
  - Thrombocytopenia [Recovered/Resolved]
  - Fusobacterium infection [Recovered/Resolved]
  - Histiocytosis haematophagic [Recovered/Resolved]
